FAERS Safety Report 8977589 (Version 9)
Quarter: 2013Q4

REPORT INFORMATION
  Report Type: Spontaneous
  Country: US (occurrence: US)
  Receive Date: 20121220
  Receipt Date: 20131009
  Transmission Date: 20140711
  Serious: Yes (Hospitalization, Other)
  Sender: FDA-Public Use
  Company Number: US-GLAXOSMITHKLINE-A1002117A

PATIENT
  Age: 66 Year
  Sex: Male

DRUGS (4)
  1. FLOLAN [Suspect]
     Indication: PULMONARY ARTERIAL HYPERTENSION
     Dosage: 20.2NGKM CONTINUOUS
     Route: 065
     Dates: start: 20010202
  2. VENTAVIS [Suspect]
     Indication: PULMONARY ARTERIAL HYPERTENSION
     Dosage: 2.5MCG UNKNOWN
     Route: 065
  3. FENTANYL [Suspect]
     Indication: PAIN
  4. COUMADIN [Concomitant]

REACTIONS (12)
  - Atrial fibrillation [Unknown]
  - Mental impairment [Not Recovered/Not Resolved]
  - Dyspnoea [Recovered/Resolved]
  - Blood pressure systolic decreased [Unknown]
  - Pain in extremity [Not Recovered/Not Resolved]
  - Amnesia [Unknown]
  - Coordination abnormal [Unknown]
  - Nausea [Unknown]
  - Cough [Unknown]
  - Mental status changes [Unknown]
  - Muscular weakness [Not Recovered/Not Resolved]
  - Hospitalisation [Unknown]
